FAERS Safety Report 23103406 (Version 1)
Quarter: 2023Q4

REPORT INFORMATION
  Report Type: Spontaneous
  Country: US (occurrence: US)
  Receive Date: 20231025
  Receipt Date: 20231025
  Transmission Date: 20240110
  Serious: No
  Sender: FDA-Public Use
  Company Number: US-SA-SAC20231025000136

PATIENT
  Age: 48 Year
  Sex: Female

DRUGS (7)
  1. DUPIXENT [Suspect]
     Active Substance: DUPILUMAB
     Indication: Dermatitis atopic
     Dosage: 300 MG, QOW
     Route: 058
     Dates: start: 20230324
  2. AMOXICILLIN [Concomitant]
     Active Substance: AMOXICILLIN
  3. CAPEX [FLUOCINOLONE ACETONIDE] [Concomitant]
  4. CLOBETASOL [Concomitant]
     Active Substance: CLOBETASOL
  5. FLUCONAZOLE [Concomitant]
     Active Substance: FLUCONAZOLE
  6. LYRICA [Concomitant]
     Active Substance: PREGABALIN
  7. MEDROL [Concomitant]
     Active Substance: METHYLPREDNISOLONE

REACTIONS (2)
  - Sleep disorder [Unknown]
  - Eye irritation [Unknown]

NARRATIVE: CASE EVENT DATE: 20230101
